FAERS Safety Report 17331839 (Version 2)
Quarter: 2020Q2

REPORT INFORMATION
  Report Type: Other
  Country: BE (occurrence: BE)
  Receive Date: 20200127
  Receipt Date: 20200406
  Transmission Date: 20200713
  Serious: Yes (Hospitalization, Other)
  Sender: FDA-Public Use
  Company Number: BE-CELLTRION INC.-2020BE017953

PATIENT

DRUGS (1)
  1. RITUXIMAB (UNKNOWN) [Suspect]
     Active Substance: RITUXIMAB
     Indication: DIFFUSE LARGE B-CELL LYMPHOMA
     Dosage: UNK
     Route: 042
     Dates: start: 201811, end: 201911

REACTIONS (4)
  - Weight decreased [Unknown]
  - Respiratory tract infection [Unknown]
  - Pneumonia [Unknown]
  - Neutropenic sepsis [Unknown]

NARRATIVE: CASE EVENT DATE: 201902
